FAERS Safety Report 20519150 (Version 1)
Quarter: 2022Q1

REPORT INFORMATION
  Report Type: Spontaneous
  Country: AR (occurrence: AR)
  Receive Date: 20220225
  Receipt Date: 20220225
  Transmission Date: 20220423
  Serious: Yes (Other)
  Sender: FDA-Public Use
  Company Number: AR-TAKEDA-2022TUS011324

PATIENT
  Age: 48 Year
  Sex: Female

DRUGS (7)
  1. HUMAN IMMUNOGLOBULIN G [Suspect]
     Active Substance: HUMAN IMMUNOGLOBULIN G
     Indication: Guillain-Barre syndrome
     Dosage: 400 MILLIGRAM/KILOGRAM, QD
     Route: 042
  2. LEVOMEPROMAZINE [Concomitant]
     Active Substance: LEVOMEPROMAZINE
     Indication: Bipolar disorder
  3. CLONAZEPAM [Concomitant]
     Active Substance: CLONAZEPAM
     Indication: Bipolar disorder
  4. MIDAZOLAM [Concomitant]
     Active Substance: MIDAZOLAM
  5. FENTANYL [Concomitant]
     Active Substance: FENTANYL
  6. NOREPINEPHRINE [Concomitant]
     Active Substance: NOREPINEPHRINE
     Indication: Autonomic nervous system imbalance
  7. ADENOSINE [Concomitant]
     Active Substance: ADENOSINE
     Indication: Arrhythmia supraventricular

REACTIONS (2)
  - Metabolic acidosis [Unknown]
  - Acute kidney injury [Unknown]
